FAERS Safety Report 10052856 (Version 3)
Quarter: 2016Q1

REPORT INFORMATION
  Report Type: Report from Study
  Country: US (occurrence: US)
  Receive Date: 20140402
  Receipt Date: 20160224
  Transmission Date: 20160525
  Serious: Yes (Hospitalization, Other)
  Sender: FDA-Public Use
  Company Number: US-SA-2014SA037675

PATIENT
  Age: 55 Year
  Sex: Female

DRUGS (1)
  1. LANTUS [Suspect]
     Active Substance: INSULIN GLARGINE
     Indication: DIABETES MELLITUS
     Dosage: SEP DOSE:35 UNIT(S)
     Route: 058

REACTIONS (8)
  - Liver disorder [Unknown]
  - Blood glucose abnormal [Unknown]
  - Frostbite [Unknown]
  - Rash [Recovered/Resolved]
  - Injection site pain [Recovered/Resolved]
  - Hospitalisation [Unknown]
  - Hepatitis C [Unknown]
  - Amputation [Unknown]

NARRATIVE: CASE EVENT DATE: 201102
